FAERS Safety Report 10780534 (Version 1)
Quarter: 2015Q1

REPORT INFORMATION
  Report Type: Spontaneous
  Country: US (occurrence: None)
  Receive Date: 20150206
  Receipt Date: 20150206
  Transmission Date: 20150721
  Serious: Yes (Hospitalization)
  Sender: FDA-Public Use
  Company Number: None

PATIENT
  Age: 40 Year
  Sex: Male

DRUGS (2)
  1. MODERIBA [Concomitant]
     Active Substance: RIBAVIRIN
  2. SOVALDI [Suspect]
     Active Substance: SOFOSBUVIR
     Dosage: 1 TABLET QD ORAL
     Route: 048

REACTIONS (1)
  - Staphylococcal infection [None]

NARRATIVE: CASE EVENT DATE: 20150205
